FAERS Safety Report 24312696 (Version 1)
Quarter: 2024Q3

REPORT INFORMATION
  Report Type: Spontaneous
  Country: GB (occurrence: GB)
  Receive Date: 20240912
  Receipt Date: 20240912
  Transmission Date: 20241017
  Serious: Yes (Other)
  Sender: TEVA
  Company Number: GB-CRESCENT PHARMA LIMITED-2024-GB-08541

PATIENT
  Age: 31 Year
  Sex: Male

DRUGS (1)
  1. RAMIPRIL [Suspect]
     Active Substance: RAMIPRIL
     Indication: Hypertension
     Route: 048

REACTIONS (5)
  - Erectile dysfunction [Unknown]
  - Product physical issue [Unknown]
  - Product formulation issue [Unknown]
  - Product packaging issue [Unknown]
  - Drug ineffective [Unknown]
